FAERS Safety Report 5953525-1 (Version None)
Quarter: 2008Q4

REPORT INFORMATION
  Report Type: 
  Country: None (occurrence: None)
  Receive Date: 20081114
  Receipt Date: 20081105
  Transmission Date: 20090506
  Serious: Yes (Other)
  Sender: FDA-Public Use
  Company Number: PHHY2008IT27424

PATIENT
  Sex: Male

DRUGS (4)
  1. EXJADE [Suspect]
     Indication: THALASSAEMIA BETA
     Dosage: 1500 MG, CYCLIC
     Route: 048
     Dates: start: 20081005, end: 20081009
  2. EXJADE [Suspect]
     Dosage: UNK
  3. NATECAL D [Concomitant]
  4. EUTIROX [Concomitant]

REACTIONS (2)
  - FACE OEDEMA [None]
  - HYPERPYREXIA [None]
